FAERS Safety Report 8183874-0 (Version None)
Quarter: 2012Q1

REPORT INFORMATION
  Report Type: 
  Country: None (occurrence: None)
  Receive Date: 20120305
  Receipt Date: 20120301
  Transmission Date: 20120608
  Serious: Yes (Other)
  Sender: FDA-Public Use
  Company Number: SE-ROCHE-1042601

PATIENT
  Age: 87 Year
  Sex: Female

DRUGS (6)
  1. ACETAMINOPHEN [Concomitant]
  2. OXYCODONE HCL [Concomitant]
  3. BUPRENORPHINE [Concomitant]
  4. LASIX [Concomitant]
     Route: 048
  5. TAMIFLU [Suspect]
     Indication: PRODUCT USED FOR UNKNOWN INDICATION
     Route: 048
     Dates: start: 20120208, end: 20120209
  6. SELEXID [Concomitant]

REACTIONS (1)
  - DELIRIUM [None]
